FAERS Safety Report 9462191 (Version 1)
Quarter: 2013Q3

REPORT INFORMATION
  Report Type: Spontaneous
  Country: CA (occurrence: CA)
  Receive Date: 20130816
  Receipt Date: 20130816
  Transmission Date: 20140515
  Serious: Yes (Life-Threatening, Hospitalization)
  Sender: FDA-Public Use
  Company Number: CA-ROCHE-1262428

PATIENT
  Age: 22 Year
  Sex: Male

DRUGS (1)
  1. KETOROLAC [Suspect]
     Indication: PRODUCT USED FOR UNKNOWN INDICATION
     Dosage: THERAPY DURATION: 1 MONTH
     Route: 065

REACTIONS (1)
  - Hepatitis cholestatic [Recovered/Resolved]
